FAERS Safety Report 4866837-X (Version None)
Quarter: 2005Q4

REPORT INFORMATION
  Report Type: 
  Country: None (occurrence: None)
  Receive Date: 20051222
  Receipt Date: 20051207
  Transmission Date: 20060501
  Serious: Yes (Death, Other)
  Sender: FDA-Public Use
  Company Number: 2005-02478

PATIENT
  Age: 43 Year
  Sex: Female

DRUGS (1)
  1. VELCADE [Suspect]

REACTIONS (4)
  - DIALYSIS [None]
  - HEPATIC FAILURE [None]
  - HEPATITIS [None]
  - RENAL FAILURE [None]
